FAERS Safety Report 7662871-5 (Version None)
Quarter: 2011Q3

REPORT INFORMATION
  Report Type: 
  Country: None (occurrence: None)
  Receive Date: 20110805
  Receipt Date: 20100812
  Transmission Date: 20111222
  Serious: No
  Sender: FDA-Public Use
  Company Number: US-ABBOTT-10P-163-0663679-00

PATIENT
  Sex: Male
  Weight: 88.076 kg

DRUGS (3)
  1. NIASPAN [Suspect]
     Indication: LOW DENSITY LIPOPROTEIN INCREASED
     Dosage: AT NIGHT
     Dates: start: 20100719
  2. NIASPAN [Suspect]
     Indication: CORONARY ARTERY DISEASE
  3. SIMVASTATIN [Concomitant]
     Indication: PRODUCT USED FOR UNKNOWN INDICATION

REACTIONS (2)
  - SINUS OPERATION [None]
  - OROPHARYNGEAL PAIN [None]
